FAERS Safety Report 23991193 (Version 1)
Quarter: 2024Q2

REPORT INFORMATION
  Report Type: Spontaneous
  Country: GB (occurrence: GB)
  Receive Date: 20240619
  Receipt Date: 20240619
  Transmission Date: 20240716
  Serious: Yes (Other)
  Sender: FDA-Public Use
  Company Number: GB-ORGANON-O2406GBR001299

PATIENT
  Sex: Female

DRUGS (1)
  1. ETONOGESTREL [Suspect]
     Active Substance: ETONOGESTREL
     Indication: Contraception
     Dosage: 1 IMPLANT
     Route: 059

REACTIONS (10)
  - Device dislocation [Recovered/Resolved]
  - Surgery [Unknown]
  - Heavy menstrual bleeding [Recovering/Resolving]
  - Abdominal distension [Recovering/Resolving]
  - Acne [Recovering/Resolving]
  - Rash [Unknown]
  - Weight increased [Recovering/Resolving]
  - Pain [Recovering/Resolving]
  - Implant site scar [Recovering/Resolving]
  - Discomfort [Recovering/Resolving]
